FAERS Safety Report 6131939-7 (Version None)
Quarter: 2009Q1

REPORT INFORMATION
  Report Type: 
  Country: None (occurrence: None)
  Receive Date: 20090325
  Receipt Date: 20090318
  Transmission Date: 20090719
  Serious: Yes (Hospitalization)
  Sender: FDA-Public Use
  Company Number: BR-AVENTIS-200912774GDDC

PATIENT
  Age: 45 Year
  Sex: Female
  Weight: 46 kg

DRUGS (12)
  1. LANTUS [Suspect]
     Route: 058
     Dates: start: 20040101
  2. LANTUS [Suspect]
     Dosage: DOSE: UNKNOWN DOSE IN AFTERNOON IF NECESSARY
     Route: 058
  3. OPTIPEN (INSULIN PUMP) [Suspect]
     Dates: start: 20050101, end: 20090314
  4. OPTIPEN (INSULIN PUMP) [Suspect]
     Dates: start: 20090320
  5. NOVORAPID [Concomitant]
     Dosage: DOSE: DEPENDING ON GLYCEMIC LEVEL
     Route: 058
     Dates: start: 20040101
  6. HEMAX [Concomitant]
     Indication: RENAL DISORDER
     Route: 048
  7. RENAGEL                            /01459902/ [Concomitant]
     Route: 048
  8. RENALVITE [Concomitant]
     Route: 048
  9. PLASIL                             /00041901/ [Concomitant]
     Route: 048
  10. OMEPRAZOLE [Concomitant]
     Route: 048
  11. AAS [Concomitant]
     Route: 048
  12. UNKNOWN DRUG [Concomitant]
     Dates: start: 20090301

REACTIONS (3)
  - BLOOD GLUCOSE FLUCTUATION [None]
  - DIABETIC COMPLICATION [None]
  - HYPOGLYCAEMIA [None]
